FAERS Safety Report 5762129-5 (Version None)
Quarter: 2008Q2

REPORT INFORMATION
  Report Type: 
  Country: None (occurrence: None)
  Receive Date: 20080604
  Receipt Date: 20080521
  Transmission Date: 20081010
  Serious: Yes (Life-Threatening, Hospitalization)
  Sender: FDA-Public Use
  Company Number: 2008EU000945

PATIENT
  Age: 36 Year
  Sex: Female

DRUGS (1)
  1. PROGRAF [Suspect]
     Dosage: 18 DF, UID/QD, ORAL
     Route: 048
     Dates: start: 20080513, end: 20080513

REACTIONS (8)
  - ABDOMINAL PAIN [None]
  - BURNING SENSATION [None]
  - DIARRHOEA [None]
  - HEADACHE [None]
  - INCORRECT DOSE ADMINISTERED [None]
  - OESOPHAGEAL PAIN [None]
  - SUICIDE ATTEMPT [None]
  - WHITE BLOOD CELL COUNT INCREASED [None]
